FAERS Safety Report 7936875-9 (Version None)
Quarter: 2011Q4

REPORT INFORMATION
  Report Type: 
  Country: None (occurrence: None)
  Receive Date: 20111123
  Receipt Date: 20111123
  Transmission Date: 20120403
  Serious: Yes (Other)
  Sender: FDA-Public Use
  Company Number: None

PATIENT
  Age: 59 Year
  Sex: Female
  Weight: 67.131 kg

DRUGS (2)
  1. CLINDAMYCIN [Suspect]
     Indication: DEVICE BREAKAGE
     Dosage: 1
     Route: 048
     Dates: start: 20111014, end: 20111020
  2. CLINDAMYCIN [Suspect]
     Indication: BACTERIAL INFECTION
     Dosage: 1
     Route: 048
     Dates: start: 20111014, end: 20111020

REACTIONS (1)
  - DIARRHOEA [None]
